FAERS Safety Report 7922014-7 (Version None)
Quarter: 2011Q4

REPORT INFORMATION
  Report Type: 
  Country: None (occurrence: None)
  Receive Date: 20111117
  Receipt Date: 20111108
  Transmission Date: 20120403
  Serious: Yes (Hospitalization)
  Sender: FDA-Public Use
  Company Number: FI-ASTRAZENECA-2011SE67863

PATIENT
  Age: 32 Year
  Sex: Male

DRUGS (3)
  1. OXAZEPAM [Concomitant]
  2. ATARAX [Concomitant]
     Dosage: AS NEEDED
  3. SEROQUEL XR [Suspect]
     Dosage: 400 MG+200 MG PER DAY
     Route: 048

REACTIONS (2)
  - URINARY RETENTION [None]
  - HYDRONEPHROSIS [None]
